FAERS Safety Report 6481663-6 (Version None)
Quarter: 2009Q4

REPORT INFORMATION
  Report Type: 
  Country: None (occurrence: None)
  Receive Date: 20091208
  Receipt Date: 20091125
  Transmission Date: 20100525
  Serious: Yes (Hospitalization, Disabling)
  Sender: FDA-Public Use
  Company Number: GB-SANOFI-AVENTIS-2009SA006317

PATIENT
  Age: 82 Year
  Sex: Male

DRUGS (4)
  1. OXALIPLATIN [Suspect]
     Indication: COLORECTAL CANCER
     Route: 041
     Dates: start: 20090514, end: 20090514
  2. ALL OTHER THERAPEUTIC PRODUCTS [Suspect]
     Indication: COLORECTAL CANCER
     Route: 042
     Dates: start: 20090514, end: 20090514
  3. FLUOROURACIL [Suspect]
     Indication: COLORECTAL CANCER
     Route: 065
     Dates: start: 20090514, end: 20090514
  4. FOLINIC ACID [Suspect]
     Indication: COLORECTAL CANCER
     Route: 065
     Dates: start: 20090514, end: 20090514

REACTIONS (2)
  - INTESTINAL PERFORATION [None]
  - NEUTROPENIA [None]
